FAERS Safety Report 15552672 (Version 1)
Quarter: 2018Q4

REPORT INFORMATION
  Report Type: Spontaneous
  Country: US (occurrence: US)
  Receive Date: 20181025
  Receipt Date: 20181025
  Transmission Date: 20190205
  Serious: No
  Sender: FDA-Public Use
  Company Number: PHEH2018US044283

PATIENT
  Sex: Female

DRUGS (2)
  1. AFINITOR [Suspect]
     Active Substance: EVEROLIMUS
     Indication: CARCINOID SYNDROME
     Dosage: UNK
     Route: 065
  2. TELOTRISTAT ETHYL [Concomitant]
     Active Substance: TELOTRISTAT ETHYL
     Dosage: 250 MG, QD
     Route: 048

REACTIONS (1)
  - Malaise [Unknown]
